FAERS Safety Report 9481527 (Version 2)
Quarter: 2013Q3

REPORT INFORMATION
  Report Type: Spontaneous
  Country: US (occurrence: US)
  Receive Date: 20130828
  Receipt Date: 20130828
  Transmission Date: 20140515
  Serious: Yes (Other)
  Sender: FDA-Public Use
  Company Number: US-AMGEN-KDL170047

PATIENT
  Age: 59 Year
  Sex: Female

DRUGS (3)
  1. ENBREL [Suspect]
     Indication: RHEUMATOID ARTHRITIS
     Dosage: UNK UNK, UNK
     Route: 065
     Dates: start: 20001101
  2. METHOTREXATE [Suspect]
  3. LEFLUNOMIDE [Concomitant]
     Dosage: UNK UNK, UNK

REACTIONS (1)
  - Interstitial lung disease [Recovered/Resolved]
